FAERS Safety Report 7701729-X (Version None)
Quarter: 2011Q3

REPORT INFORMATION
  Report Type: 
  Country: None (occurrence: None)
  Receive Date: 20110822
  Receipt Date: 20110811
  Transmission Date: 20111222
  Serious: Yes (Hospitalization)
  Sender: FDA-Public Use
  Company Number: CA-JNJFOC-20110806827

PATIENT
  Sex: Female
  Weight: 82.1 kg

DRUGS (18)
  1. ARICEPT [Concomitant]
  2. LENOLTECH NO 3 [Concomitant]
  3. REMICADE [Suspect]
     Indication: RHEUMATOID ARTHRITIS
     Route: 042
     Dates: start: 20030417
  4. FUROSEMIDE [Concomitant]
     Route: 048
  5. DOMPERIDONE [Concomitant]
  6. REMICADE [Suspect]
     Dosage: 49TH INFLIXIMAB INFUSION
     Route: 042
     Dates: start: 20110811
  7. REMICADE [Suspect]
     Route: 042
  8. REMICADE [Suspect]
     Route: 042
     Dates: start: 20110601
  9. HUMULIN N [Concomitant]
  10. LOPERAMIDE HCL [Concomitant]
  11. RAMIPRIL [Concomitant]
     Route: 048
  12. PRADAXA [Concomitant]
  13. FOLIC ACID [Concomitant]
  14. MIRTAZAPINE [Concomitant]
  15. METOPROLOL [Concomitant]
  16. LANSOPRAZOLE [Concomitant]
  17. HUMULIN R [Concomitant]
  18. ZOPICLONE [Concomitant]

REACTIONS (1)
  - HEART RATE INCREASED [None]
